FAERS Safety Report 15981176 (Version 1)
Quarter: 2019Q1

REPORT INFORMATION
  Report Type: Report from Study
  Country: BR (occurrence: BR)
  Receive Date: 20190219
  Receipt Date: 20190219
  Transmission Date: 20190418
  Serious: Yes (Other)
  Sender: FDA-Public Use
  Company Number: BR-UCBSA-2019006832

PATIENT
  Age: 0 Year
  Sex: Female
  Weight: 2.4 kg

DRUGS (3)
  1. LEVETIRACETAM. [Suspect]
     Active Substance: LEVETIRACETAM
     Indication: EPILEPSY
     Dosage: 250 MG, 3X/DAY (TID)
     Route: 064
     Dates: start: 20180612, end: 20181208
  2. AEROLIN [Concomitant]
     Active Substance: ALBUTEROL
     Indication: ASTHMA
  3. FOLIC ACID. [Concomitant]
     Active Substance: FOLIC ACID
     Indication: PREGNANCY

REACTIONS (2)
  - Foetal exposure during pregnancy [Unknown]
  - Low birth weight baby [Unknown]

NARRATIVE: CASE EVENT DATE: 20180612
